FAERS Safety Report 9919195 (Version 2)
Quarter: 2014Q1

REPORT INFORMATION
  Report Type: Spontaneous
  Country: IT (occurrence: IT)
  Receive Date: 20140224
  Receipt Date: 20140314
  Transmission Date: 20141002
  Serious: Yes (Hospitalization)
  Sender: FDA-Public Use
  Company Number: IT-PFIZER INC-2014047429

PATIENT
  Age: 32 Year
  Sex: Female

DRUGS (4)
  1. XANAX [Suspect]
     Dosage: 10 MG, DAILY
     Route: 048
     Dates: start: 20140202, end: 20140202
  2. SERTRALINE HCL [Suspect]
     Dosage: 450 MG, DAILY
     Route: 048
     Dates: start: 20140202, end: 20140202
  3. QUETIAPINE [Concomitant]
     Dosage: UNK
  4. FLURAZEPAM HYDROCHLORIDE [Concomitant]
     Dosage: UNK

REACTIONS (2)
  - Suicide attempt [Recovering/Resolving]
  - Intentional overdose [Recovering/Resolving]
